FAERS Safety Report 20188216 (Version 1)
Quarter: 2021Q4

REPORT INFORMATION
  Report Type: Spontaneous
  Country: QA (occurrence: QA)
  Receive Date: 20211215
  Receipt Date: 20211215
  Transmission Date: 20220303
  Serious: Yes (Life-Threatening, Hospitalization, Other)
  Sender: FDA-Public Use
  Company Number: QA-SLATE RUN PHARMACEUTICALS-21QA000832

PATIENT

DRUGS (6)
  1. AZITHROMYCIN [Suspect]
     Active Substance: AZITHROMYCIN
     Indication: Maternal exposure during pregnancy
     Dosage: UNK
     Route: 015
  2. METFORMIN [Concomitant]
     Active Substance: METFORMIN HYDROCHLORIDE
     Indication: Maternal exposure during pregnancy
     Route: 015
  3. UNSPECIFIED INGREDIENT [Concomitant]
     Active Substance: UNSPECIFIED INGREDIENT
     Indication: Maternal exposure during pregnancy
     Route: 015
  4. INSULIN NOS [Concomitant]
     Active Substance: INSULIN NOS
     Indication: Maternal exposure during pregnancy
     Route: 015
  5. ERYTHROMYCIN [Concomitant]
     Active Substance: ERYTHROMYCIN
     Indication: Maternal exposure during pregnancy
     Route: 015
  6. CEFAZOLIN [Concomitant]
     Active Substance: CEFAZOLIN
     Indication: Maternal exposure during pregnancy
     Route: 015

REACTIONS (11)
  - Neonatal respiratory distress syndrome [Recovered/Resolved]
  - Sepsis neonatal [Recovered/Resolved]
  - Premature baby [Recovered/Resolved]
  - Pathogen resistance [Recovered/Resolved]
  - Escherichia sepsis [Recovered/Resolved]
  - Tachycardia foetal [Recovered/Resolved]
  - Pulmonary hypertension [Unknown]
  - Haemoglobin decreased [Unknown]
  - ABO incompatibility [Recovered/Resolved]
  - Meningitis neonatal [Recovered/Resolved]
  - Foetal exposure during pregnancy [Recovered/Resolved]
